FAERS Safety Report 12356441 (Version 1)
Quarter: 2016Q2

REPORT INFORMATION
  Report Type: Spontaneous
  Country: None (occurrence: US)
  Receive Date: 20160511
  Receipt Date: 20160511
  Transmission Date: 20160815
  Serious: No
  Sender: FDA-Public Use
  Company Number: US-QOL MEDICAL, LLC-1051956

PATIENT
  Age: 18 Year
  Sex: Male
  Weight: 67.27 kg

DRUGS (2)
  1. DRUG FOR IBS - NAME UNKNOWN [Concomitant]
     Dates: start: 20160310, end: 2016
  2. SUCRAID [Suspect]
     Active Substance: SACROSIDASE
     Indication: SUCROSE INTOLERANCE
     Route: 048
     Dates: start: 20151001, end: 20160310

REACTIONS (5)
  - Vomiting [Recovered/Resolved]
  - Incorrect product storage [None]
  - Nausea [Recovered/Resolved]
  - Diarrhoea [Recovered/Resolved]
  - Abdominal pain [Recovered/Resolved]

NARRATIVE: CASE EVENT DATE: 20160208
